FAERS Safety Report 25089740 (Version 1)
Quarter: 2025Q1

REPORT INFORMATION
  Report Type: Spontaneous
  Country: CN (occurrence: CN)
  Receive Date: 20250318
  Receipt Date: 20250318
  Transmission Date: 20250408
  Serious: Yes (Other)
  Sender: ANI
  Company Number: CN-ANIPHARMA-2025-CN-000065

PATIENT
  Age: 41 Year
  Sex: Female

DRUGS (3)
  1. ARIMIDEX [Suspect]
     Active Substance: ANASTROZOLE
     Indication: Neoplasm
     Route: 048
     Dates: start: 20240823
  2. GOSERELIN [Suspect]
     Active Substance: GOSERELIN
     Route: 050
     Dates: start: 20240823, end: 20250205
  3. DEVICE [Suspect]
     Active Substance: DEVICE

REACTIONS (3)
  - Lipids increased [Unknown]
  - Hypercholesterolaemia [Unknown]
  - Low density lipoprotein increased [Unknown]

NARRATIVE: CASE EVENT DATE: 20250217
